FAERS Safety Report 26138655 (Version 1)
Quarter: 2025Q4

REPORT INFORMATION
  Report Type: Spontaneous
  Country: RU (occurrence: RU)
  Receive Date: 20251210
  Receipt Date: 20251210
  Transmission Date: 20260118
  Serious: Yes (Other)
  Sender: ROCHE
  Company Number: RU-ROCHE-10000452757

PATIENT
  Sex: Female

DRUGS (14)
  1. OBINUTUZUMAB [Suspect]
     Active Substance: OBINUTUZUMAB
     Indication: Follicular lymphoma stage III
     Dosage: 2ND CYCLE OF OBINUTUZUMAB + BENDAMUSTINE (SECOND-LINE THERAPY (GB NO. 2)
  2. OBINUTUZUMAB [Suspect]
     Active Substance: OBINUTUZUMAB
     Dosage: 1ST CYCLE OF OBINUTUZUMAB + BENDAMUSTINE (SECOND-LINE THERAPY (GB NO. 2)
  3. MOSUNETUZUMAB [Suspect]
     Active Substance: MOSUNETUZUMAB
     Indication: Follicular lymphoma stage III
     Dosage: MONOTHERAPY, CYCLE 6 (AS THE 6TH LINE OF THERAPY)
  4. RITUXIMAB [Suspect]
     Active Substance: RITUXIMAB
     Indication: Follicular lymphoma stage III
     Dosage: 4TH CYCLE OF RITUXIMAB + LENALIDOMIDE
     Dates: start: 20241029, end: 202411
  5. RITUXIMAB [Suspect]
     Active Substance: RITUXIMAB
     Dosage: R2 THERAPY
  6. RITUXIMAB [Suspect]
     Active Substance: RITUXIMAB
     Dosage: 1 CYCLE OF R-BAC THERAPY
  7. DUVELISIB [Suspect]
     Active Substance: DUVELISIB
     Indication: Follicular lymphoma stage III
  8. LENALIDOMIDE [Suspect]
     Active Substance: LENALIDOMIDE
     Indication: Follicular lymphoma stage III
     Dosage: 4TH CYCLE OF RITUXIMAB + LENALIDOMIDE
     Dates: start: 20241029, end: 202411
  9. LENALIDOMIDE [Suspect]
     Active Substance: LENALIDOMIDE
     Dosage: R2 THERAPY
  10. BENDAMUSTINE [Suspect]
     Active Substance: BENDAMUSTINE
     Indication: Follicular lymphoma stage III
     Dosage: 2ND CYCLE OF OBINUTUZUMAB + BENDAMUSTINE (SECOND-LINE THERAPY (GB NO. 2)
  11. BENDAMUSTINE [Suspect]
     Active Substance: BENDAMUSTINE
     Dosage: 1 CYCLE OF R-BAC THERAPY
  12. BENDAMUSTINE [Suspect]
     Active Substance: BENDAMUSTINE
     Dosage: 1ST CYCLE OF OBINUTUZUMAB + BENDAMUSTINE (SECOND-LINE THERAPY (GB NO. 2)
  13. BENDAMUSTINE [Suspect]
     Active Substance: BENDAMUSTINE
     Dosage: 1 CYCLE OF BENDAMUSTINE MONOTHERAPY DUE TO THE UNAVAILABILITY OF OBINUTUZUMAB
  14. CYTARABINE [Suspect]
     Active Substance: CYTARABINE
     Indication: Follicular lymphoma stage III
     Dosage: 1 CYCLE OF R-BAC THERAPY

REACTIONS (3)
  - Disease progression [Unknown]
  - Neutropenia [Unknown]
  - Therapy partial responder [Unknown]
